FAERS Safety Report 4358469-7 (Version None)
Quarter: 2004Q2

REPORT INFORMATION
  Report Type: 
  Country: None (occurrence: None)
  Receive Date: 20040514
  Receipt Date: 20030130
  Transmission Date: 20050107
  Serious: Yes (Hospitalization, Other)
  Sender: FDA-Public Use
  Company Number: PHEH2003US01145

PATIENT
  Age: 80 Year
  Sex: Female

DRUGS (14)
  1. TRASTUZUMAB [Concomitant]
     Indication: BREAST CANCER METASTATIC
     Dosage: 160 MG, QW
     Dates: start: 20000101
  2. AREDIA [Suspect]
     Indication: BREAST CANCER
     Dosage: 90 MG, Q 3-1/2 WEEKS
     Dates: start: 19980101
  3. COMBIVENT [Concomitant]
     Dosage: UNK/UNK
  4. ALBUTEROL [Concomitant]
     Dosage: UNK/UNK
  5. ALPHAGAN [Concomitant]
  6. PENICILLIN [Concomitant]
     Dosage: 500 MG, UNK
     Dates: start: 20001120, end: 20020530
  7. AMBIEN [Concomitant]
     Dosage: UNK/UNK
  8. LEVOXYL [Concomitant]
     Dosage: 100 MCG, UNK
  9. DEMADEX [Concomitant]
     Dosage: 20 MG, UNK
  10. ZESTRIL [Concomitant]
     Dosage: 5 MG, UNK
  11. VITAMIN E [Concomitant]
     Dosage: 400 MG, UNK
  12. VITAMIN C [Concomitant]
     Dosage: 1000 MG, UNK
  13. CALCIUM [Concomitant]
     Dosage: 600 MG, UNK
  14. MULTIVITAMIN [Concomitant]
     Dosage: UNK/UNK

REACTIONS (16)
  - CHRONIC SINUSITIS [None]
  - FAILURE OF IMPLANT [None]
  - FISTULA [None]
  - IMPAIRED HEALING [None]
  - MANDIBULECTOMY [None]
  - METASTASES TO BONE [None]
  - OEDEMA MOUTH [None]
  - OSTEOMYELITIS ACUTE [None]
  - OSTEOMYELITIS CHRONIC [None]
  - OSTEONECROSIS [None]
  - PATHOLOGICAL FRACTURE [None]
  - PERIPHERAL NERVE OPERATION [None]
  - SURGERY [None]
  - TOOTH EXTRACTION [None]
  - WOUND COMPLICATION [None]
  - WOUND DEBRIDEMENT [None]
